FAERS Safety Report 7869355-X (Version None)
Quarter: 2011Q4

REPORT INFORMATION
  Report Type: 
  Country: None (occurrence: None)
  Receive Date: 20111028
  Receipt Date: 20110103
  Transmission Date: 20120403
  Serious: No
  Sender: FDA-Public Use
  Company Number: US-AMGEN-USASP2010012109

PATIENT
  Age: 37 Year
  Sex: Female

DRUGS (1)
  1. ENBREL [Suspect]
     Indication: PSORIASIS
     Dosage: 50 MG, 2 TIMES/WK
     Route: 058
     Dates: start: 20101219

REACTIONS (5)
  - INJECTION SITE PAIN [None]
  - INJECTION SITE ERYTHEMA [None]
  - PARAESTHESIA [None]
  - RASH ERYTHEMATOUS [None]
  - SKIN BURNING SENSATION [None]
